APPROVED DRUG PRODUCT: AUVELITY
Active Ingredient: BUPROPION HYDROCHLORIDE; DEXTROMETHORPHAN HYDROBROMIDE
Strength: 105MG;45MG
Dosage Form/Route: TABLET, EXTENDED RELEASE;ORAL
Application: N215430 | Product #001
Applicant: AXSOME THERAPEUTICS INC
Approved: Aug 18, 2022 | RLD: Yes | RS: Yes | Type: RX

PATENTS:
Patent 12146889 | Expires: Feb 23, 2043
Patent 11524008 | Expires: Nov 5, 2034
Patent 11524007 | Expires: Nov 5, 2034
Patent 11517542 | Expires: Nov 5, 2034
Patent 11517543 | Expires: Nov 5, 2034
Patent 11510918 | Expires: Nov 5, 2034
Patent 12310961 | Expires: Jan 20, 2043
Patent 11382874 | Expires: Nov 5, 2034
Patent 11364233 | Expires: Nov 5, 2034
Patent 9457025 | Expires: Nov 5, 2034
Patent 10058518 | Expires: Nov 5, 2034
Patent 9278095 | Expires: Nov 5, 2034
Patent 9867819 | Expires: Nov 5, 2034
Patent 9168234 | Expires: Nov 5, 2034
Patent 9861595 | Expires: Nov 5, 2034
Patent 8569328 | Expires: Oct 29, 2033
Patent 9700553 | Expires: Nov 5, 2034
Patent 11357744 | Expires: Nov 5, 2034
Patent 11344544 | Expires: Nov 5, 2034
Patent 9486450 | Expires: Nov 5, 2034
Patent 9474731 | Expires: Nov 5, 2034
Patent 9375429 | Expires: Nov 5, 2034
Patent 9421176 | Expires: Nov 5, 2034
Patent 9408815 | Expires: Nov 5, 2034
Patent 9763932 | Expires: Nov 5, 2034
Patent 11311534 | Expires: Nov 5, 2034
Patent 9205083 | Expires: Nov 5, 2034
Patent 9707191 | Expires: Nov 5, 2034
Patent 10898453 | Expires: Nov 5, 2034
Patent 11433067 | Expires: Nov 5, 2034
Patent 9700528 | Expires: Nov 5, 2034
Patent 9370513 | Expires: Nov 5, 2034
Patent 9457023 | Expires: Nov 5, 2034
Patent 9238032 | Expires: Nov 5, 2034
Patent 11096937 | Expires: Nov 5, 2034
Patent 11298352 | Expires: Nov 5, 2034
Patent 10966941 | Expires: Nov 5, 2034
Patent 11298351 | Expires: Nov 5, 2034
Patent 11090300 | Expires: Nov 5, 2034
Patent 10894047 | Expires: Nov 5, 2034
Patent 10064857 | Expires: Nov 5, 2034
Patent 11291665 | Expires: Nov 5, 2034
Patent 10780066 | Expires: Nov 9, 2034
Patent 10780064 | Expires: Jan 7, 2040
Patent 11291638 | Expires: Nov 5, 2034
Patent 10786469 | Expires: Nov 5, 2034
Patent 11253492 | Expires: Nov 5, 2034
Patent 10881657 | Expires: Nov 5, 2034
Patent 10874663 | Expires: Nov 5, 2034
Patent 10799497 | Expires: Nov 5, 2034
Patent 11058648 | Expires: Nov 5, 2034
Patent 11273133 | Expires: Nov 5, 2034
Patent 10864209 | Expires: Nov 5, 2034
Patent 10806710 | Expires: Nov 5, 2034
Patent 10881624 | Expires: Nov 5, 2034
Patent 10786496 | Expires: Nov 5, 2034
Patent 11020389 | Expires: Nov 5, 2034
Patent 11185515 | Expires: Nov 5, 2034
Patent 10945973 | Expires: Nov 5, 2034
Patent 10966942 | Expires: Jan 7, 2040
Patent 11285146 | Expires: Nov 5, 2034
Patent 11285118 | Expires: Nov 5, 2034
Patent 10596167 | Expires: Nov 5, 2034
Patent 11439636 | Expires: Nov 5, 2034
Patent 9314462 | Expires: Nov 5, 2034
Patent 9198905 | Expires: Nov 5, 2034
Patent 11426401 | Expires: Nov 5, 2034
Patent 11426370 | Expires: Nov 5, 2034
Patent 11419867 | Expires: Nov 5, 2034
Patent 12390428 | Expires: Dec 1, 2041
Patent 10772850 | Expires: Nov 5, 2034
Patent 10940124 | Expires: Jan 7, 2040
Patent 11273134 | Expires: Nov 5, 2034
Patent 11253491 | Expires: Nov 5, 2034
Patent 11234946 | Expires: Nov 5, 2034
Patent 10548857 | Expires: Nov 5, 2034
Patent 11229640 | Expires: Nov 5, 2034
Patent 10874665 | Expires: Nov 5, 2034
Patent 10933034 | Expires: Nov 5, 2034
Patent 10251879 | Expires: Nov 5, 2034
Patent 10925842 | Expires: Jan 7, 2040
Patent 10092561 | Expires: Nov 5, 2034
Patent 10894046 | Expires: Nov 5, 2034
Patent 11191739 | Expires: Nov 5, 2034
Patent 10874664 | Expires: Nov 5, 2034
Patent 10080727 | Expires: Nov 5, 2034
Patent 11197839 | Expires: Nov 5, 2034
Patent 11147808 | Expires: Nov 5, 2034
Patent 11207281 | Expires: Nov 5, 2034
Patent 11141416 | Expires: Nov 5, 2034
Patent 11141388 | Expires: Nov 5, 2034
Patent 11213521 | Expires: Nov 5, 2034
Patent 11129826 | Expires: Nov 5, 2034
Patent 11123343 | Expires: Nov 5, 2034
Patent 10966974 | Expires: Nov 5, 2034
Patent 10512643 | Expires: Nov 5, 2034
Patent 10463634 | Expires: Nov 5, 2034
Patent 10105361 | Expires: Nov 5, 2034
Patent 10105327 | Expires: Nov 5, 2034
Patent 10092560 | Expires: Nov 5, 2034
Patent 11752144 | Expires: Feb 23, 2043
Patent 11925636 | Expires: Jan 20, 2043
Patent 9968568 | Expires: Nov 5, 2034
Patent 12042473 | Expires: Feb 23, 2043
Patent 12036191 | Expires: Feb 15, 2043
Patent 11969421 | Expires: Nov 5, 2034
Patent 11590124 | Expires: Nov 5, 2034
Patent 11576909 | Expires: Nov 5, 2034
Patent 11571417 | Expires: Nov 5, 2034
Patent 11123344 | Expires: Nov 5, 2034
Patent 11065248 | Expires: Nov 5, 2034
Patent 11896563 | Expires: Dec 1, 2041
Patent 12357697 | Expires: Jan 20, 2043
Patent 11478468 | Expires: Nov 5, 2034
Patent 11541048 | Expires: Nov 5, 2034
Patent 11541021 | Expires: Nov 5, 2034
Patent 11534414 | Expires: Nov 5, 2034
Patent 11779579 | Expires: Nov 5, 2034
Patent 11617728 | Expires: Nov 5, 2034
Patent 11617747 | Expires: Nov 5, 2034
Patent 11730706 | Expires: Jan 23, 2043
Patent 11717518 | Expires: Jan 20, 2043
Patent 11596627 | Expires: Nov 5, 2034
Patent 11497721 | Expires: Nov 5, 2034
Patent 11844797 | Expires: Apr 20, 2043
Patent 11839612 | Expires: Mar 2, 2043
Patent 11883373 | Expires: Jan 23, 2043
Patent 11986444 | Expires: Feb 15, 2043
Patent 12109178 | Expires: Nov 5, 2034
Patent 12156914 | Expires: Jan 20, 2043